FAERS Safety Report 17949450 (Version 5)
Quarter: 2020Q3

REPORT INFORMATION
  Report Type: Spontaneous
  Country: DE (occurrence: DE)
  Receive Date: 20200625
  Receipt Date: 20200910
  Transmission Date: 20201103
  Serious: Yes (Death, Hospitalization)
  Sender: FDA-Public Use
  Company Number: NVSC2020DE178350

PATIENT
  Age: 65 Year
  Sex: Male

DRUGS (18)
  1. IFOSFAMIDE. [Suspect]
     Active Substance: IFOSFAMIDE
     Indication: DIFFUSE LARGE B-CELL LYMPHOMA
     Dosage: UNK (AS PART OF R?DEVIC TREATMENT FOR SEVERAL MONTHS (LAST THERAPY CYCLE WAS ADMINISTERED 2 WEEKS BE
     Route: 065
  2. CARBOPLATIN. [Suspect]
     Active Substance: CARBOPLATIN
     Indication: IMMUNOSUPPRESSANT DRUG THERAPY
  3. ETOPOSIDE. [Suspect]
     Active Substance: ETOPOSIDE
     Indication: DIFFUSE LARGE B-CELL LYMPHOMA
     Dosage: UNK (AS PART OF R?DEVIC TREATMENT FOR SEVERAL MONTHS (LAST THERAPY CYCLE WAS ADMINISTERED 2 WEEKS BE
     Route: 065
  4. DEXAMETHASONE. [Suspect]
     Active Substance: DEXAMETHASONE
     Indication: HYPERTENSION
  5. IFOSFAMIDE. [Suspect]
     Active Substance: IFOSFAMIDE
     Indication: HYPERTENSION
  6. TAZOBACTAM SODIUM AND PIPERACILLIN SODIUM [Concomitant]
     Active Substance: PIPERACILLIN SODIUM\TAZOBACTAM SODIUM
     Indication: ANTI-INFECTIVE THERAPY
     Dosage: UNK
     Route: 065
  7. ETOPOSIDE. [Suspect]
     Active Substance: ETOPOSIDE
     Indication: HYPERTENSION
  8. RITUXIMAB. [Suspect]
     Active Substance: RITUXIMAB
     Indication: IMMUNOSUPPRESSANT DRUG THERAPY
  9. CARBOPLATIN. [Suspect]
     Active Substance: CARBOPLATIN
     Indication: DIFFUSE LARGE B-CELL LYMPHOMA
     Dosage: UNK (AS PART OF R?DEVIC TREATMENT FOR SEVERAL MONTHS (LAST THERAPY CYCLE WAS ADMINISTERED 2 WEEKS BE
     Route: 065
  10. IFOSFAMIDE. [Suspect]
     Active Substance: IFOSFAMIDE
     Indication: IMMUNOSUPPRESSANT DRUG THERAPY
  11. DEXAMETHASONE. [Suspect]
     Active Substance: DEXAMETHASONE
     Indication: IMMUNOSUPPRESSANT DRUG THERAPY
     Dosage: UNK (AS PART OF R?DEVIC TREATMENT (FOR SEVERAL MONTHS), THE LAST DOSE WAS ADMINISTERED 2 WEEKS BEFOR
     Route: 065
  12. IBRUTINIB [Suspect]
     Active Substance: IBRUTINIB
     Indication: DIFFUSE LARGE B-CELL LYMPHOMA
     Dosage: UNK
     Route: 065
  13. TAZOBACTAM SODIUM AND PIPERACILLIN SODIUM [Concomitant]
     Active Substance: PIPERACILLIN SODIUM\TAZOBACTAM SODIUM
     Indication: COVID-19
  14. RITUXIMAB. [Suspect]
     Active Substance: RITUXIMAB
     Indication: DIFFUSE LARGE B-CELL LYMPHOMA
     Dosage: UNK (AS PART OF R?DEVIC TREATMENT FOR SEVERAL MONTHS (LAST THERAPY CYCLE WAS ADMINISTERED 2 WEEKS BE
     Route: 065
  15. ETOPOSIDE. [Suspect]
     Active Substance: ETOPOSIDE
     Indication: IMMUNOSUPPRESSANT DRUG THERAPY
     Dosage: UNK (PART OF R?DEVIC; LAST CYCLE 2 WKS BEFORE SARS?COV?2 INFECTION)
     Route: 065
  16. DEXAMETHASONE. [Suspect]
     Active Substance: DEXAMETHASONE
     Indication: DIFFUSE LARGE B-CELL LYMPHOMA
  17. RITUXIMAB. [Suspect]
     Active Substance: RITUXIMAB
     Indication: HYPERTENSION
  18. CARBOPLATIN. [Suspect]
     Active Substance: CARBOPLATIN
     Indication: HYPERTENSION

REACTIONS (6)
  - Pyrexia [Fatal]
  - Product use in unapproved indication [Unknown]
  - COVID-19 pneumonia [Fatal]
  - COVID-19 [Fatal]
  - Respiratory failure [Fatal]
  - Off label use [Fatal]
